FAERS Safety Report 24632665 (Version 7)
Quarter: 2025Q4

REPORT INFORMATION
  Report Type: Spontaneous
  Country: US (occurrence: US)
  Receive Date: 20241118
  Receipt Date: 20251221
  Transmission Date: 20260117
  Serious: Yes (Hospitalization, Other)
  Sender: BIOMARIN
  Company Number: US-SA-2024SA322417

PATIENT
  Age: 9 Year
  Sex: Male
  Weight: 20.45 kg

DRUGS (22)
  1. LARONIDASE [Suspect]
     Active Substance: LARONIDASE
     Indication: Mucopolysaccharidosis I
     Dosage: 31.9 MG, QW
     Dates: start: 20180301, end: 2018
  2. LARONIDASE [Suspect]
     Active Substance: LARONIDASE
     Dosage: 31.9 MG, QW
     Dates: start: 20180821, end: 2018
  3. LARONIDASE [Suspect]
     Active Substance: LARONIDASE
     Dosage: 31.9 MG, QW
     Dates: start: 20181018
  4. LARONIDASE [Suspect]
     Active Substance: LARONIDASE
     Dosage: 31.9 MG, QW
     Dates: end: 202509
  5. LARONIDASE [Suspect]
     Active Substance: LARONIDASE
     Dosage: 31.9 MG, QW
     Dates: start: 20250925
  6. EPINEPHRINE [Concomitant]
     Active Substance: EPINEPHRINE
     Indication: Product used for unknown indication
     Dosage: UNK
  7. SODIUM CHLORIDE [Concomitant]
     Active Substance: SODIUM CHLORIDE
     Indication: Product used for unknown indication
     Dosage: UNK
  8. ACETAMINOPHEN [Concomitant]
     Active Substance: ACETAMINOPHEN
     Indication: Product used for unknown indication
     Dosage: UNK
  9. MIRALAX [Concomitant]
     Active Substance: POLYETHYLENE GLYCOL 3350
     Indication: Product used for unknown indication
     Dosage: UNK
  10. SODIUM CHLORIDE [Concomitant]
     Active Substance: SODIUM CHLORIDE
     Indication: Product used for unknown indication
     Dosage: UNK
  11. HEPARIN [Concomitant]
     Active Substance: HEPARIN SODIUM
     Indication: Product used for unknown indication
     Dosage: UNK
  12. FLONASE ALLERGY RELIEF [Concomitant]
     Active Substance: FLUTICASONE PROPIONATE
     Indication: Product used for unknown indication
     Dosage: UNK
  13. VITAMINS [Concomitant]
     Active Substance: VITAMINS
     Indication: Product used for unknown indication
     Dosage: UNK
  14. LIDOCAINE [Concomitant]
     Active Substance: LIDOCAINE
     Indication: Product used for unknown indication
     Dosage: UNK
  15. PRILOCAINE [Concomitant]
     Active Substance: PRILOCAINE
     Indication: Product used for unknown indication
     Dosage: UNK
  16. OXYGEN [Concomitant]
     Active Substance: OXYGEN
     Indication: Product used for unknown indication
     Dosage: UNK
  17. DIPHENHYDRAMINE [Concomitant]
     Active Substance: DIPHENHYDRAMINE
     Indication: Product used for unknown indication
     Dosage: UNK
  18. ZYRTEC [Concomitant]
     Active Substance: CETIRIZINE HYDROCHLORIDE
     Indication: Product used for unknown indication
     Dosage: UNK
  19. ERYTHROMYCIN ETHYLSUCCINATE [Concomitant]
     Active Substance: ERYTHROMYCIN ETHYLSUCCINATE
     Indication: Product used for unknown indication
     Dosage: UNK
  20. TOBRAMYCIN [Concomitant]
     Active Substance: TOBRAMYCIN
     Indication: Product used for unknown indication
     Dosage: UNK
  21. CLONIDINE [Concomitant]
     Active Substance: CLONIDINE
     Indication: Product used for unknown indication
     Dosage: UNK
  22. SIMETHICONE (DIMETHICONE) [Concomitant]
     Active Substance: DIMETHICONE
     Indication: Product used for unknown indication
     Dosage: UNK

REACTIONS (11)
  - Seizure [Unknown]
  - Pneumonia [Unknown]
  - Acute respiratory distress syndrome [Unknown]
  - Hypoxia [Unknown]
  - Influenza [Unknown]
  - Tracheostomy [Unknown]
  - Surgical vascular shunt [Unknown]
  - Gastrointestinal tube insertion [Unknown]
  - Illness [Unknown]
  - Nasopharyngitis [Unknown]
  - Intentional product misuse [Unknown]

NARRATIVE: CASE EVENT DATE: 20240101
